FAERS Safety Report 6767547-4 (Version None)
Quarter: 2010Q2

REPORT INFORMATION
  Report Type: 
  Country: None (occurrence: None)
  Receive Date: 20100614
  Receipt Date: 20100603
  Transmission Date: 20101027
  Serious: Yes (Other)
  Sender: FDA-Public Use
  Company Number: GB-AMGEN-US407659

PATIENT
  Sex: Female

DRUGS (6)
  1. ENBREL [Suspect]
     Indication: RHEUMATOID ARTHRITIS
     Route: 058
     Dates: start: 20061001
  2. FOLIC ACID [Concomitant]
     Dosage: 5 MG (FREQUENCY UNKNOWN)
     Route: 048
     Dates: start: 19960701
  3. ASPIRIN [Concomitant]
     Dosage: 7.5 MG, FREQUENCY UNKNOWN
     Route: 048
  4. METHOTREXATE [Concomitant]
     Route: 048
     Dates: start: 19960701
  5. MOBIC [Concomitant]
     Dosage: 15 MG, FREQUENCY UNKNOWN
     Route: 048
  6. AMITRIPTYLINE [Concomitant]
     Dosage: 5 MG, FREQUENCY UNKNOWN
     Dates: start: 19960701

REACTIONS (1)
  - MYASTHENIA GRAVIS [None]
